FAERS Safety Report 6567324-3 (Version None)
Quarter: 2010Q1

REPORT INFORMATION
  Report Type: 
  Country: None (occurrence: None)
  Receive Date: 20100202
  Receipt Date: 20100121
  Transmission Date: 20100710
  Serious: Yes (Other)
  Sender: FDA-Public Use
  Company Number: PHHY2009BR54588

PATIENT
  Sex: Female
  Weight: 74 kg

DRUGS (3)
  1. DIOVAN [Suspect]
     Indication: HYPERTENSION
     Dosage: 1 TABLET (160 MG) IN MORNING
     Route: 048
     Dates: start: 20090801
  2. DIOVAN [Suspect]
     Dosage: 2 TABLETS/DAY
  3. INSULIN [Concomitant]
     Indication: DIABETES MELLITUS

REACTIONS (11)
  - BLINDNESS [None]
  - BLOOD PRESSURE INADEQUATELY CONTROLLED [None]
  - BLOOD PRESSURE INCREASED [None]
  - DIZZINESS [None]
  - DRUG INEFFECTIVE [None]
  - FEELING ABNORMAL [None]
  - HEADACHE [None]
  - INSOMNIA [None]
  - MOUTH INJURY [None]
  - NAUSEA [None]
  - ORAL MUCOSAL EXFOLIATION [None]
